FAERS Safety Report 24267768 (Version 1)
Quarter: 2024Q3

REPORT INFORMATION
  Report Type: Spontaneous
  Country: US (occurrence: US)
  Receive Date: 20240830
  Receipt Date: 20240830
  Transmission Date: 20241016
  Serious: No
  Sender: AMGEN
  Company Number: US-AMGEN-USASP2024173045

PATIENT

DRUGS (1)
  1. IMDELLTRA [Suspect]
     Active Substance: TARLATAMAB-DLLE
     Indication: Small cell lung cancer
     Dosage: 1 MILLIGRAM; DOSE REQUESTED: 1 MG VIAL X 1
     Route: 065

REACTIONS (2)
  - Intercepted product preparation error [Unknown]
  - Product label confusion [Unknown]

NARRATIVE: CASE EVENT DATE: 20240826
